FAERS Safety Report 7220626-X (Version None)
Quarter: 2011Q1

REPORT INFORMATION
  Report Type: 
  Country: None (occurrence: None)
  Receive Date: 20110111
  Receipt Date: 20110106
  Transmission Date: 20110831
  Serious: Yes (Hospitalization)
  Sender: FDA-Public Use
  Company Number: FR-PFIZER INC-2011003409

PATIENT
  Age: 66 Year
  Sex: Male

DRUGS (5)
  1. TEMESTA [Concomitant]
     Indication: HYPERTENSION
     Dosage: 1 DF, AS NEEDED
     Dates: start: 20020101
  2. NOCTRAN 10 [Concomitant]
     Indication: HYPERTENSION
     Dosage: UNK
  3. FELDENE [Suspect]
     Dosage: 20 MG, 1X/DAY
     Route: 048
     Dates: start: 20101207, end: 20101208
  4. BIPRETERAX [Concomitant]
     Indication: HYPERTENSION
     Dosage: 1 DF, 1X/DAY
     Route: 048
     Dates: start: 20020101
  5. NOCTAMID [Concomitant]
     Dosage: 1 DF, 1X/DAY
     Dates: start: 20020101

REACTIONS (4)
  - HAEMATOMA [None]
  - MELAENA [None]
  - RETICULOCYTE COUNT DECREASED [None]
  - PANCYTOPENIA [None]
